APPROVED DRUG PRODUCT: MESTINON
Active Ingredient: PYRIDOSTIGMINE BROMIDE
Strength: 60MG
Dosage Form/Route: TABLET;ORAL
Application: N009829 | Product #002 | TE Code: AB
Applicant: BAUSCH HEALTH US LLC
Approved: Approved Prior to Jan 1, 1982 | RLD: Yes | RS: Yes | Type: RX